FAERS Safety Report 9702152 (Version 2)
Quarter: 2014Q1

REPORT INFORMATION
  Report Type: Spontaneous
  Country: US (occurrence: US)
  Receive Date: 20131121
  Receipt Date: 20140115
  Transmission Date: 20141002
  Serious: No
  Sender: FDA-Public Use
  Company Number: US-009507513-1311USA008775

PATIENT
  Age: 17 Year
  Sex: Female
  Weight: 58.5 kg

DRUGS (1)
  1. NEXPLANON [Suspect]
     Dosage: UNK, ONE ROD EVERY THREE YEARS
     Route: 059
     Dates: start: 20131115

REACTIONS (4)
  - Device difficult to use [Recovered/Resolved]
  - Device expulsion [Recovered/Resolved]
  - No adverse event [Unknown]
  - Product quality issue [Unknown]
